FAERS Safety Report 18597967 (Version 1)
Quarter: 2020Q4

REPORT INFORMATION
  Report Type: Spontaneous
  Country: US (occurrence: US)
  Receive Date: 20201210
  Receipt Date: 20201210
  Transmission Date: 20210114
  Serious: No
  Sender: FDA-Public Use
  Company Number: US-ASTRAZENECA-2020SF55984

PATIENT
  Sex: Female

DRUGS (1)
  1. BYETTA [Suspect]
     Active Substance: EXENATIDE
     Indication: TYPE 2 DIABETES MELLITUS
     Dosage: 250 MCG / 2.4 ML PEN, TWICE DAILY
     Route: 058

REACTIONS (6)
  - Blood glucose abnormal [Unknown]
  - Hypophagia [Unknown]
  - Stress [Unknown]
  - Intentional device misuse [Unknown]
  - Device defective [Unknown]
  - Product dose omission issue [Unknown]
